FAERS Safety Report 21794544 (Version 1)
Quarter: 2022Q4

REPORT INFORMATION
  Report Type: Spontaneous
  Country: GB (occurrence: GB)
  Receive Date: 20221229
  Receipt Date: 20221229
  Transmission Date: 20230113
  Serious: Yes (Disabling, Other)
  Sender: FDA-Public Use
  Company Number: None

PATIENT
  Age: 40 Year
  Sex: Female

DRUGS (1)
  1. VENLAFAXINE [Suspect]
     Active Substance: VENLAFAXINE HYDROCHLORIDE
     Indication: Anxiety
     Dosage: 1 TABLET DAILY
     Route: 065

REACTIONS (11)
  - Nightmare [Not Recovered/Not Resolved]
  - Irritability postvaccinal [Not Recovered/Not Resolved]
  - Night sweats [Not Recovered/Not Resolved]
  - Malaise [Unknown]
  - Sitting disability [Unknown]
  - Anxiety [Unknown]
  - Depression [Unknown]
  - Drug withdrawal syndrome [Unknown]
  - Social avoidant behaviour [Unknown]
  - Feeling abnormal [Unknown]
  - Intentional product use issue [Unknown]

NARRATIVE: CASE EVENT DATE: 20220104
